FAERS Safety Report 18781178 (Version 1)
Quarter: 2021Q1

REPORT INFORMATION
  Report Type: Spontaneous
  Country: US (occurrence: US)
  Receive Date: 20210123
  Receipt Date: 20210123
  Transmission Date: 20210419
  Serious: Yes (Death, Hospitalization)
  Sender: FDA-Public Use
  Company Number: None

PATIENT
  Sex: Female
  Weight: 47.2 kg

DRUGS (12)
  1. DEXAMETHASONE. [Concomitant]
     Active Substance: DEXAMETHASONE
  2. VINCRISTINE [Concomitant]
     Active Substance: VINCRISTINE
  3. METHOTREXATE. [Concomitant]
     Active Substance: METHOTREXATE
  4. GLEEVEC [Concomitant]
     Active Substance: IMATINIB MESYLATE
  5. DAUNORUBICIN [Concomitant]
     Active Substance: DAUNORUBICIN
  6. LEUCOVORIN CALCIUM. [Concomitant]
     Active Substance: LEUCOVORIN CALCIUM
  7. ONCASPAR [Concomitant]
     Active Substance: PEGASPARGASE
  8. CYTARABINE. [Suspect]
     Active Substance: CYTARABINE
  9. ZINECARD [Concomitant]
     Active Substance: DEXRAZOXANE HYDROCHLORIDE
  10. IFOSFAMIDE. [Concomitant]
     Active Substance: IFOSFAMIDE
  11. MESNA. [Concomitant]
     Active Substance: MESNA
  12. NEULASTA [Concomitant]
     Active Substance: PEGFILGRASTIM

REACTIONS (45)
  - Epistaxis [None]
  - White blood cell count decreased [None]
  - Pancreatitis [None]
  - Respiratory distress [None]
  - Tachycardia [None]
  - Fungal skin infection [None]
  - Herpes simplex [None]
  - Splenic infarction [None]
  - Mucormycosis [None]
  - Acute respiratory distress syndrome [None]
  - Hepatic function abnormal [None]
  - Vomiting [None]
  - Platelet count abnormal [None]
  - Packed red blood cell transfusion [None]
  - Blood culture positive [None]
  - Pneumonia [None]
  - Skin lesion [None]
  - Cytomegalovirus infection [None]
  - Ammonia increased [None]
  - Mechanical ventilation complication [None]
  - Ileus [None]
  - Haemoglobin decreased [None]
  - Platelet transfusion [None]
  - Pain in extremity [None]
  - Sputum culture positive [None]
  - Pleural effusion [None]
  - Blood bilirubin abnormal [None]
  - Pneumonia fungal [None]
  - Bacterial infection [None]
  - Cerebral haemorrhage [None]
  - Renal infarct [None]
  - Anxiety [None]
  - Rash [None]
  - Disseminated mucormycosis [None]
  - Cardio-respiratory arrest [None]
  - Chest X-ray abnormal [None]
  - Abdominal distension [None]
  - Pyrexia [None]
  - Computerised tomogram kidney abnormal [None]
  - Sedation complication [None]
  - Upper gastrointestinal haemorrhage [None]
  - Thyroiditis [None]
  - Abdominal pain [None]
  - Bacteraemia [None]
  - Pain [None]

NARRATIVE: CASE EVENT DATE: 20210106
